FAERS Safety Report 7878602-X (Version None)
Quarter: 2011Q4

REPORT INFORMATION
  Report Type: 
  Country: None (occurrence: None)
  Receive Date: 20111101
  Receipt Date: 20111101
  Transmission Date: 20120403
  Serious: Yes (Hospitalization)
  Sender: FDA-Public Use
  Company Number: None

PATIENT
  Sex: Male
  Weight: 59 kg

DRUGS (25)
  1. WARFARIN SODIUM [Suspect]
     Indication: ATRIAL FIBRILLATION
     Dosage: 2.5MG
     Route: 048
     Dates: start: 20111021, end: 20111021
  2. WARFARIN SODIUM [Suspect]
     Indication: HEART VALVE REPLACEMENT
     Dosage: 2.5MG
     Route: 048
     Dates: start: 20111021, end: 20111021
  3. NORCO [Concomitant]
  4. DUONEB [Concomitant]
  5. ATORVASTATIN [Concomitant]
  6. CLARITIN [Concomitant]
  7. MECLIZINE [Concomitant]
  8. MULTI-VITAMIN [Concomitant]
  9. RAMIPRIL [Concomitant]
  10. RESTORIL [Concomitant]
  11. SPIRIVA [Concomitant]
  12. ASPIRIN [Concomitant]
  13. FOLIC ACID [Concomitant]
  14. PHENERGAN HCL [Concomitant]
  15. CARAGATE [Concomitant]
  16. FLOMAX [Concomitant]
  17. ZOLOFT [Concomitant]
  18. LEVAQUIN [Concomitant]
     Indication: PNEUMONIA
     Dosage: 500MG
     Route: 048
     Dates: start: 20111023, end: 20111026
  19. ASCORBIC ACID [Concomitant]
  20. CLONAZEPAM [Concomitant]
  21. CREON [Concomitant]
  22. PROTONIX [Concomitant]
  23. BRIMONIDINE TARTRATE [Concomitant]
  24. COREG [Concomitant]
  25. DILAUDID [Concomitant]

REACTIONS (4)
  - INTERNATIONAL NORMALISED RATIO INCREASED [None]
  - MALNUTRITION [None]
  - INTERNATIONAL NORMALISED RATIO DECREASED [None]
  - DRUG INTERACTION [None]
